FAERS Safety Report 7743088-2 (Version None)
Quarter: 2011Q3

REPORT INFORMATION
  Report Type: 
  Country: None (occurrence: None)
  Receive Date: 20110912
  Receipt Date: 20110829
  Transmission Date: 20111222
  Serious: No
  Sender: FDA-Public Use
  Company Number: US-ELI_LILLY_AND_COMPANY-US201012006014

PATIENT
  Sex: Female
  Weight: 55.34 kg

DRUGS (19)
  1. FORTEO [Suspect]
     Indication: OSTEOPOROSIS
     Dosage: 20 UG, DAILY (1/D)
     Route: 058
     Dates: start: 20100601
  2. FORTEO [Suspect]
     Dosage: 20 UG, QD
     Route: 058
  3. GLUCOPHAGE [Concomitant]
  4. XANAX [Concomitant]
  5. VOLTAREN [Concomitant]
  6. CELEBREX [Concomitant]
  7. MILNACIPRAN [Concomitant]
  8. ELAVIL [Concomitant]
  9. PERCOCET [Concomitant]
  10. LANTUS [Concomitant]
  11. HUMALOG MIX 75/25 [Concomitant]
  12. OXYGEN [Concomitant]
  13. METHOTREXATE [Concomitant]
  14. ZANAFLEX [Concomitant]
  15. SYMBICORT [Concomitant]
  16. CYMBALTA [Concomitant]
  17. LIDODERM [Concomitant]
  18. PREDNISONE [Concomitant]
     Dosage: UNK, PRN
  19. HYDROMORPHONE HCL [Concomitant]

REACTIONS (9)
  - PAIN IN EXTREMITY [None]
  - BONE PAIN [None]
  - FIBROMYALGIA [None]
  - PAIN [None]
  - MUSCLE SPASMS [None]
  - FALL [None]
  - ANKLE FRACTURE [None]
  - LOWER LIMB FRACTURE [None]
  - MALAISE [None]
